FAERS Safety Report 7666770-4 (Version None)
Quarter: 2011Q3

REPORT INFORMATION
  Report Type: 
  Country: None (occurrence: None)
  Receive Date: 20110806
  Receipt Date: 20110225
  Transmission Date: 20111222
  Serious: No
  Sender: FDA-Public Use
  Company Number: US-ABBOTT-11P-163-0707705-00

PATIENT
  Sex: Male
  Weight: 69.462 kg

DRUGS (5)
  1. NIASPAN [Suspect]
     Indication: HIGH DENSITY LIPOPROTEIN DECREASED
     Dosage: 1500 MG, AT BEDTIME
     Dates: start: 20100101
  2. NIASPAN [Suspect]
     Indication: CORONARY ARTERY DISEASE
     Dates: end: 20100101
  3. RAMIPRIL [Concomitant]
     Indication: PRODUCT USED FOR UNKNOWN INDICATION
  4. SIMVASTATIN [Concomitant]
     Indication: PRODUCT USED FOR UNKNOWN INDICATION
  5. PLAVIX [Concomitant]
     Indication: PRODUCT USED FOR UNKNOWN INDICATION

REACTIONS (4)
  - BLOOD UREA INCREASED [None]
  - FLUSHING [None]
  - BLOOD GLUCOSE INCREASED [None]
  - PRURITUS [None]
